FAERS Safety Report 7396868-X (Version None)
Quarter: 2011Q1

REPORT INFORMATION
  Report Type: 
  Country: None (occurrence: None)
  Receive Date: 20110331
  Receipt Date: 20110331
  Transmission Date: 20110831
  Serious: Yes (Other)
  Sender: FDA-Public Use
  Company Number: None

PATIENT
  Age: 58 Year
  Sex: Female
  Weight: 81.6475 kg

DRUGS (3)
  1. GABAPENTIN [Suspect]
     Indication: HYPOAESTHESIA
     Dosage: 300 MG. T.I.D. PO
     Route: 048
     Dates: start: 20110215, end: 20110225
  2. GABAPENTIN [Suspect]
     Indication: SCIATICA
     Dosage: 300 MG. T.I.D. PO
     Route: 048
     Dates: start: 20110215, end: 20110225
  3. GABAPENTIN [Suspect]
     Dosage: 600 MG. T.I.D. PO
     Route: 048
     Dates: start: 20110225, end: 20110314

REACTIONS (4)
  - THINKING ABNORMAL [None]
  - IRRITABILITY [None]
  - ABNORMAL BEHAVIOUR [None]
  - PANIC ATTACK [None]
